FAERS Safety Report 16361562 (Version 2)
Quarter: 2019Q3

REPORT INFORMATION
  Report Type: Spontaneous
  Country: US (occurrence: US)
  Receive Date: 20190528
  Receipt Date: 20190702
  Transmission Date: 20191004
  Serious: No
  Sender: FDA-Public Use
  Company Number: US-PFIZER INC-2019178884

PATIENT
  Age: 62 Year
  Sex: Male
  Weight: 89.8 kg

DRUGS (5)
  1. VFEND [Suspect]
     Active Substance: VORICONAZOLE
     Dosage: 450 MG, 2X/DAY
  2. VFEND [Suspect]
     Active Substance: VORICONAZOLE
     Dosage: 50 MG, 2X/DAY
  3. VFEND [Suspect]
     Active Substance: VORICONAZOLE
     Dosage: 450 MG, DAILY (TWO 200MG, TABLETS TWICE DAILY AND ONE 50 MG ONCE DAILY)
     Route: 048
     Dates: start: 201810
  4. VFEND [Suspect]
     Active Substance: VORICONAZOLE
     Dosage: 450 MG, DAILY (TWO 200MG, TABLETS TWICE DAILY AND ONE 50 MG ONCE DAILY)
     Route: 048
     Dates: start: 201810
  5. VFEND [Suspect]
     Active Substance: VORICONAZOLE
     Indication: ASPERGILLUS INFECTION
     Dosage: 200 MG, 2X/DAY

REACTIONS (9)
  - Visual impairment [Unknown]
  - Off label use [Unknown]
  - Pain in extremity [Recovered/Resolved]
  - Constipation [Not Recovered/Not Resolved]
  - Faeces pale [Not Recovered/Not Resolved]
  - Hypoaesthesia [Unknown]
  - Product use issue [Unknown]
  - Feeling abnormal [Unknown]
  - Vision blurred [Not Recovered/Not Resolved]

NARRATIVE: CASE EVENT DATE: 201810
